FAERS Safety Report 17098433 (Version 4)
Quarter: 2021Q1

REPORT INFORMATION
  Report Type: Spontaneous
  Country: US (occurrence: US)
  Receive Date: 20191202
  Receipt Date: 20210319
  Transmission Date: 20210419
  Serious: No
  Sender: FDA-Public Use
  Company Number: US-PFIZER INC-2019512199

PATIENT
  Age: 65 Year
  Sex: Male
  Weight: 108.86 kg

DRUGS (6)
  1. CELECOXIB. [Suspect]
     Active Substance: CELECOXIB
     Indication: INTERVERTEBRAL DISC DEGENERATION
     Dosage: 200 MG (ONE CAPSULE AT 06:00 AND ONE AT 14:00)
     Dates: start: 2020
  2. CELECOXIB. [Suspect]
     Active Substance: CELECOXIB
     Indication: NERVE INJURY
  3. DICLOFENAC [Concomitant]
     Active Substance: DICLOFENAC
  4. CELECOXIB. [Suspect]
     Active Substance: CELECOXIB
     Indication: SPINAL FUSION SURGERY
  5. TYLENOL A [Concomitant]
     Active Substance: ACETAMINOPHEN
     Dosage: 350 MG, 2X/DAY
  6. LYRICA [Concomitant]
     Active Substance: PREGABALIN

REACTIONS (3)
  - Drug ineffective [Unknown]
  - Abdominal discomfort [Unknown]
  - Dyspepsia [Not Recovered/Not Resolved]

NARRATIVE: CASE EVENT DATE: 2020
